FAERS Safety Report 6234432-6 (Version None)
Quarter: 2009Q2

REPORT INFORMATION
  Report Type: 
  Country: None (occurrence: None)
  Receive Date: 20090618
  Receipt Date: 20090608
  Transmission Date: 20091009
  Serious: Yes (Other)
  Sender: FDA-Public Use
  Company Number: IT-ROCHE-637586

PATIENT
  Age: 35 Year
  Sex: Female

DRUGS (4)
  1. MYCOPHENOLATE MOFETIL [Suspect]
     Indication: PROPHYLAXIS
     Route: 065
  2. TACROLIMUS [Suspect]
     Indication: PROPHYLAXIS
     Route: 065
  3. PREDNISONE [Suspect]
     Indication: PROPHYLAXIS
     Route: 065
  4. AZATHIOPRINE [Suspect]
     Indication: PROPHYLAXIS
     Route: 065

REACTIONS (1)
  - PROTEINURIA [None]
